FAERS Safety Report 17593554 (Version 1)
Quarter: 2020Q1

REPORT INFORMATION
  Report Type: Spontaneous
  Country: US (occurrence: US)
  Receive Date: 20200327
  Receipt Date: 20200327
  Transmission Date: 20200409
  Serious: No
  Sender: FDA-Public Use
  Company Number: US-GILEAD-2020-0456914

PATIENT
  Age: 38 Year
  Sex: Male
  Weight: 65.77 kg

DRUGS (5)
  1. CHANTIX [Suspect]
     Active Substance: VARENICLINE TARTRATE
     Indication: SMOKING CESSATION THERAPY
     Dosage: 150MG, 150, 200MG AND 10MG
     Route: 065
     Dates: start: 20190324
  2. TRUVADA [Suspect]
     Active Substance: EMTRICITABINE\TENOFOVIR DISOPROXIL FUMARATE
     Indication: HIV INFECTION
     Route: 065
  3. REYATAZ [Concomitant]
     Active Substance: ATAZANAVIR SULFATE
  4. NORVIR [Concomitant]
     Active Substance: RITONAVIR
  5. GENVOYA [Suspect]
     Active Substance: COBICISTAT\ELVITEGRAVIR\EMTRICITABINE\TENOFOVIR ALAFENAMIDE FUMARATE
     Indication: HIV INFECTION
     Dosage: 1 DOSAGE FORM
     Route: 065
     Dates: start: 2018

REACTIONS (4)
  - Abnormal dreams [Unknown]
  - Nightmare [Unknown]
  - Ex-tobacco user [Not Recovered/Not Resolved]
  - Vomiting [Unknown]

NARRATIVE: CASE EVENT DATE: 201903
